FAERS Safety Report 23855890 (Version 1)
Quarter: 2024Q2

REPORT INFORMATION
  Report Type: Spontaneous
  Country: US (occurrence: US)
  Receive Date: 20240515
  Receipt Date: 20240515
  Transmission Date: 20240716
  Serious: Yes (Other)
  Sender: FDA-Public Use
  Company Number: US-TAKEDA-2024TUS046398

PATIENT
  Sex: Female
  Weight: 59 kg

DRUGS (1)
  1. VYVANSE [Suspect]
     Active Substance: LISDEXAMFETAMINE DIMESYLATE
     Indication: Product used for unknown indication
     Dosage: 70 MILLIGRAM
     Route: 065
     Dates: start: 2017

REACTIONS (4)
  - Suicidal ideation [Unknown]
  - Insurance issue [Unknown]
  - Loss of employment [Unknown]
  - Inappropriate schedule of product administration [Unknown]
